FAERS Safety Report 6177925-2 (Version None)
Quarter: 2009Q2

REPORT INFORMATION
  Report Type: 
  Country: None (occurrence: None)
  Receive Date: 20090504
  Receipt Date: 20090422
  Transmission Date: 20091009
  Serious: Yes (Other)
  Sender: FDA-Public Use
  Company Number: US-MERCK-0811USA02523

PATIENT
  Age: 66 Year
  Sex: Female

DRUGS (2)
  1. FOSAMAX [Suspect]
     Indication: OSTEOPOROSIS
     Route: 048
     Dates: start: 19980601, end: 20010425
  2. FOSAMAX [Suspect]
     Route: 048
     Dates: start: 20010501, end: 20080204

REACTIONS (56)
  - ADVERSE EVENT [None]
  - ANXIETY DISORDER [None]
  - APHTHOUS STOMATITIS [None]
  - ARTHRALGIA [None]
  - ARTHROPATHY [None]
  - ATROPHIC VULVOVAGINITIS [None]
  - BACK DISORDER [None]
  - BACK PAIN [None]
  - BONE LESION [None]
  - BURNING MOUTH SYNDROME [None]
  - CHEST INJURY [None]
  - CHEST PAIN [None]
  - CONSTIPATION [None]
  - DEPRESSION [None]
  - DERMATITIS [None]
  - DRUG HYPERSENSITIVITY [None]
  - DRUG INEFFECTIVE [None]
  - DYSURIA [None]
  - EYE INFLAMMATION [None]
  - FALL [None]
  - FIBROMYALGIA [None]
  - HERNIA [None]
  - HYPERTENSION [None]
  - HYPERTHYROIDISM [None]
  - HYPOAESTHESIA ORAL [None]
  - HYPOTHYROIDISM [None]
  - IMPAIRED HEALING [None]
  - INSOMNIA [None]
  - JAW DISORDER [None]
  - LABILE BLOOD PRESSURE [None]
  - MYOFASCIAL PAIN SYNDROME [None]
  - NAUSEA [None]
  - NECROSIS [None]
  - ORAL INFECTION [None]
  - ORAL TORUS [None]
  - OSTEONECROSIS [None]
  - OVERDOSE [None]
  - PAIN [None]
  - PELVIC FRACTURE [None]
  - PELVIC PAIN [None]
  - PEPTIC ULCER [None]
  - PERINEURIAL CYST [None]
  - PNEUMONIA [None]
  - PRURITUS [None]
  - RADICULOPATHY [None]
  - RHINITIS ALLERGIC [None]
  - RIB FRACTURE [None]
  - SCOLIOSIS [None]
  - SEASONAL ALLERGY [None]
  - SPINAL COMPRESSION FRACTURE [None]
  - SPINAL FRACTURE [None]
  - STOMATITIS NECROTISING [None]
  - TOOTH DISORDER [None]
  - TRANSIENT ISCHAEMIC ATTACK [None]
  - TYPE 2 DIABETES MELLITUS [None]
  - WEIGHT DECREASED [None]
